FAERS Safety Report 22250099 (Version 1)
Quarter: 2023Q2

REPORT INFORMATION
  Report Type: Spontaneous
  Country: US (occurrence: None)
  Receive Date: 20230422
  Receipt Date: 20230422
  Transmission Date: 20230721
  Serious: Yes (Death)
  Sender: FDA-Public Use
  Company Number: None

PATIENT
  Age: 67 Year
  Sex: Male
  Weight: 95.25 kg

DRUGS (26)
  1. ABIRATERONE ACETATE [Suspect]
     Active Substance: ABIRATERONE ACETATE
     Indication: Prostate cancer
     Dosage: FREQUENCY : DAILY;?
     Route: 048
     Dates: start: 20220804
  2. PREDNISONE [Suspect]
     Active Substance: PREDNISONE
     Indication: Prostate cancer
     Dosage: FREQUENCY : DAILY;?
     Route: 048
     Dates: start: 20220804
  3. ALBUTEROL [Concomitant]
     Active Substance: ALBUTEROL
     Indication: Prostate cancer
  4. AMLODIPINE [Concomitant]
     Active Substance: AMLODIPINE BESYLATE
  5. ASPIRIN [Concomitant]
     Active Substance: ASPIRIN
  6. AZELASTINE [Concomitant]
     Active Substance: AZELASTINE
  7. CALCIUM CITRATE [Concomitant]
     Active Substance: CALCIUM CITRATE
  8. VITAMINS [Concomitant]
     Active Substance: VITAMINS
  9. CHONDROITIN SULFATE (BOVINE) [Concomitant]
     Active Substance: CHONDROITIN SULFATE (BOVINE)
  10. CINNAMON [Concomitant]
     Active Substance: CINNAMON
  11. FAMOTIDINE [Concomitant]
     Active Substance: FAMOTIDINE
  12. FISH OIL [Concomitant]
     Active Substance: FISH OIL
  13. GLUCOSAMINE [Concomitant]
     Active Substance: GLUCOSAMINE
  14. LASIX [Concomitant]
     Active Substance: FUROSEMIDE
  15. LUPRON DEPOT [Concomitant]
     Active Substance: LEUPROLIDE ACETATE
  16. DIMETHYL SULFONE [Concomitant]
     Active Substance: DIMETHYL SULFONE
  17. NASACORT ALLERGY 24HR [Concomitant]
     Active Substance: TRIAMCINOLONE ACETONIDE
  18. OMEPRAZOLE [Concomitant]
     Active Substance: OMEPRAZOLE
  19. POTASSIUM CHLORIDE [Concomitant]
     Active Substance: POTASSIUM CHLORIDE
  20. PREDNISONE [Concomitant]
     Active Substance: PREDNISONE
  21. HERBALS\SAW PALMETTO [Concomitant]
     Active Substance: HERBALS\SAW PALMETTO
  22. TAMSULOSIN [Concomitant]
     Active Substance: TAMSULOSIN
  23. TRELEGY ELLIPTA [Concomitant]
     Active Substance: FLUTICASONE FUROATE\UMECLIDINIUM BROMIDE\VILANTEROL TRIFENATATE
  24. VITAMIN D3 [Concomitant]
     Active Substance: CHOLECALCIFEROL
  25. ZOFRAN [Concomitant]
     Active Substance: ONDANSETRON HYDROCHLORIDE
  26. ZOMETA [Concomitant]
     Active Substance: ZOLEDRONIC ACID

REACTIONS (1)
  - Death [None]

NARRATIVE: CASE EVENT DATE: 20230421
